FAERS Safety Report 4746112-4 (Version None)
Quarter: 2005Q3

REPORT INFORMATION
  Report Type: 
  Country: None (occurrence: None)
  Receive Date: 20050816
  Receipt Date: 20050715
  Transmission Date: 20060218
  Serious: Yes (Disabling)
  Sender: FDA-Public Use
  Company Number: PHFR2005GB02478

PATIENT
  Age: 55 Year
  Sex: Male

DRUGS (5)
  1. ZOMETA [Suspect]
     Indication: LYMPHOMA
     Dosage: 4MG/MONTHLY
     Route: 042
     Dates: start: 20041015, end: 20041221
  2. PREDNISOLONE [Concomitant]
     Indication: PROPHYLAXIS AGAINST TRANSPLANT REJECTION
     Dosage: 60-10 UKN
     Route: 048
     Dates: start: 20041001, end: 20050101
  3. PENTAMIDINE [Concomitant]
     Indication: PROPHYLAXIS AGAINST TRANSPLANT REJECTION
     Dosage: 300MG/MONTLY
  4. TRAMADOL HCL [Concomitant]
     Indication: PAIN
     Dosage: 50 MG, TID
     Route: 048
  5. PAMIDRONATE DISODIUM [Concomitant]
     Dosage: UNK, UNK
     Route: 065
     Dates: start: 20040801

REACTIONS (2)
  - ASEPTIC NECROSIS BONE [None]
  - DISEASE RECURRENCE [None]
